FAERS Safety Report 25424751 (Version 2)
Quarter: 2025Q2

REPORT INFORMATION
  Report Type: Spontaneous
  Country: AR (occurrence: AR)
  Receive Date: 20250611
  Receipt Date: 20250617
  Transmission Date: 20250716
  Serious: Yes (Life-Threatening, Other)
  Sender: SANDOZ
  Company Number: AR-002147023-NVSC2025AR066857

PATIENT
  Age: 39 Year
  Sex: Female

DRUGS (3)
  1. KISQALI [Suspect]
     Active Substance: RIBOCICLIB SUCCINATE
     Indication: Breast cancer metastatic
     Route: 065
     Dates: start: 20250403, end: 20250506
  2. LETROZOLE [Suspect]
     Active Substance: LETROZOLE
     Indication: Breast cancer metastatic
     Route: 065
  3. ZOLEDRONIC ACID [Suspect]
     Active Substance: ZOLEDRONIC ACID
     Indication: Breast cancer metastatic
     Route: 065

REACTIONS (13)
  - Terminal state [Not Recovered/Not Resolved]
  - Breast cancer metastatic [Unknown]
  - Mobility decreased [Unknown]
  - Hip fracture [Unknown]
  - Intestinal metastasis [Unknown]
  - Femur fracture [Unknown]
  - Constipation [Unknown]
  - Malignant neoplasm progression [Unknown]
  - Decreased appetite [Unknown]
  - Pain [Unknown]
  - Aphonia [Unknown]
  - Anaemia [Unknown]
  - Malaise [Unknown]

NARRATIVE: CASE EVENT DATE: 20250401
